FAERS Safety Report 9477738 (Version 2)
Quarter: 2013Q3

REPORT INFORMATION
  Report Type: Report from Study
  Country: DE (occurrence: DE)
  Receive Date: 20130827
  Receipt Date: 20130902
  Transmission Date: 20140515
  Serious: Yes (Hospitalization, Other)
  Sender: FDA-Public Use
  Company Number: DE-ROCHE-1265931

PATIENT
  Age: 43 Year
  Sex: Female

DRUGS (2)
  1. TOCILIZUMAB [Suspect]
     Indication: RHEUMATOID ARTHRITIS
     Route: 065
     Dates: end: 201205
  2. TOCILIZUMAB [Suspect]
     Route: 065
     Dates: end: 201301

REACTIONS (3)
  - Pharyngitis [Recovered/Resolved]
  - Respiratory distress [Recovered/Resolved]
  - Angioedema [Recovered/Resolved]
